FAERS Safety Report 11713814 (Version 1)
Quarter: 2015Q4

REPORT INFORMATION
  Report Type: Spontaneous
  Country: US (occurrence: None)
  Receive Date: 20151106
  Receipt Date: 20151106
  Transmission Date: 20160304
  Serious: Yes (Other)
  Sender: FDA-Public Use
  Company Number: None

PATIENT
  Age: 71 Year
  Sex: Female
  Weight: 76.66 kg

DRUGS (8)
  1. LEVOTHYROXINE. [Concomitant]
     Active Substance: LEVOTHYROXINE
  2. BPAC MACHINE [Concomitant]
  3. LEVOFLOXACIN 500 MG [Suspect]
     Active Substance: LEVOFLOXACIN
     Indication: PNEUMONIA
     Route: 048
     Dates: start: 20151015, end: 20151030
  4. OMEPHAZOLE [Concomitant]
  5. LEVOFLOXACIN 500 MG [Suspect]
     Active Substance: LEVOFLOXACIN
     Indication: BRONCHITIS
     Route: 048
     Dates: start: 20151015, end: 20151030
  6. RITALIN [Concomitant]
     Active Substance: METHYLPHENIDATE HYDROCHLORIDE
  7. PRAMIPEXOLE. [Concomitant]
     Active Substance: PRAMIPEXOLE
  8. ONE-A-DAY NOS [Concomitant]
     Active Substance: MINERALS\VITAMINS

REACTIONS (15)
  - Nervousness [None]
  - Pruritus [None]
  - Somnolence [None]
  - Insomnia [None]
  - Chest pain [None]
  - Diarrhoea [None]
  - Dizziness [None]
  - Asthenia [None]
  - Nausea [None]
  - Fatigue [None]
  - Feeling hot [None]
  - Mobility decreased [None]
  - Balance disorder [None]
  - Hyperhidrosis [None]
  - Heart rate increased [None]

NARRATIVE: CASE EVENT DATE: 20151023
